FAERS Safety Report 13058299 (Version 1)
Quarter: 2020Q3

REPORT INFORMATION
  Report Type: Report from Study
  Country: AT (occurrence: AT)
  Receive Date: 20161223
  Receipt Date: 20161223
  Transmission Date: 20201105
  Serious: Yes (Death, Other)
  Sender: FDA-Public Use
  Company Number: AT-ROCHE-1869963

PATIENT

DRUGS (7)
  1. FALDAPREVIR [Suspect]
     Active Substance: FALDAPREVIR
     Indication: CHRONIC HEPATITIS C
     Route: 065
  2. DANOPREVIR. [Suspect]
     Active Substance: DANOPREVIR
     Indication: CHRONIC HEPATITIS C
     Route: 065
  3. PEG?INTERFERON ALFA 2A [Suspect]
     Active Substance: PEGINTERFERON ALFA-2A
     Indication: CHRONIC HEPATITIS C
     Route: 065
  4. BOCEPREVIR [Suspect]
     Active Substance: BOCEPREVIR
     Indication: CHRONIC HEPATITIS C
     Route: 065
  5. RIBAVIRIN. [Suspect]
     Active Substance: RIBAVIRIN
     Indication: CHRONIC HEPATITIS C
     Route: 065
  6. TELAPREVIR [Suspect]
     Active Substance: TELAPREVIR
     Indication: CHRONIC HEPATITIS C
     Route: 065
  7. SIMEPREVIR [Suspect]
     Active Substance: SIMEPREVIR
     Indication: CHRONIC HEPATITIS C
     Route: 065

REACTIONS (17)
  - Pneumonitis [Unknown]
  - Gastroenteritis [Unknown]
  - Depression [Unknown]
  - Hyponatraemia [Unknown]
  - Drug reaction with eosinophilia and systemic symptoms [Unknown]
  - Pneumonia [Unknown]
  - Ileus [Unknown]
  - Renal cell carcinoma [Unknown]
  - Psychotic disorder [Unknown]
  - Hepatocellular carcinoma [Unknown]
  - Rash [Unknown]
  - Discomfort [Unknown]
  - Chest pain [Unknown]
  - Sepsis [Unknown]
  - Septic shock [Fatal]
  - Hepatic failure [Unknown]
  - Anaemia [Unknown]
